FAERS Safety Report 7703489-5 (Version None)
Quarter: 2011Q3

REPORT INFORMATION
  Report Type: 
  Country: None (occurrence: None)
  Receive Date: 20110823
  Receipt Date: 20110811
  Transmission Date: 20111222
  Serious: Yes (Hospitalization)
  Sender: FDA-Public Use
  Company Number: NL-SANOFI-AVENTIS-2011SA044449

PATIENT
  Age: 67 Year
  Sex: Male
  Weight: 113 kg

DRUGS (8)
  1. METOPROLOL TARTRATE [Concomitant]
  2. ATACAND [Concomitant]
  3. LASIX [Concomitant]
  4. CRESTOR [Concomitant]
  5. ACENOCOUMAROL [Concomitant]
  6. INSULIN [Concomitant]
  7. SLOW-K [Concomitant]
  8. DRONEDARONE HCL [Suspect]
     Indication: ATRIAL FIBRILLATION
     Route: 048
     Dates: start: 20110510

REACTIONS (1)
  - CARDIAC FAILURE [None]
